FAERS Safety Report 7393918-1 (Version None)
Quarter: 2011Q2

REPORT INFORMATION
  Report Type: 
  Country: None (occurrence: None)
  Receive Date: 20110405
  Receipt Date: 20110330
  Transmission Date: 20111010
  Serious: Yes (Other)
  Sender: FDA-Public Use
  Company Number: US-PERRIGO-11US002374

PATIENT
  Sex: Female
  Weight: 24.943 kg

DRUGS (2)
  1. OMNICEF [Concomitant]
     Indication: EAR INFECTION
     Dosage: UNK
     Route: 065
     Dates: start: 20110319
  2. IBUPROFEN [Suspect]
     Indication: EAR PAIN
     Dosage: 2 TSP, ONCE
     Route: 048
     Dates: start: 20110319, end: 20110319

REACTIONS (2)
  - DYSPNOEA [None]
  - HYPERSENSITIVITY [None]
